FAERS Safety Report 9254892 (Version 4)
Quarter: 2013Q3

REPORT INFORMATION
  Report Type: Spontaneous
  Country: BE (occurrence: None)
  Receive Date: 20130422
  Receipt Date: 20130820
  Transmission Date: 20140515
  Serious: Yes (Hospitalization, Congenital Anomaly)
  Sender: FDA-Public Use
  Company Number: SYM-2013-02940

PATIENT
  Age: 0 Day
  Sex: Male

DRUGS (5)
  1. WELLBUTRIN [Suspect]
     Indication: DEPRESSION
     Route: 064
     Dates: start: 201111, end: 20130125
  2. TRANXENE (CLORAZEPATE DIPOTASSIUM) (CAPSULES) (CLORAZEPATE DIPOTASSIUM) [Suspect]
     Indication: INSOMNIA
     Route: 064
     Dates: end: 20120320
  3. CIRCADIN [Suspect]
     Indication: INSOMNIA
     Route: 064
     Dates: end: 20120416
  4. XANAX (ALPRAZOLAM) [Suspect]
     Indication: FEAR
     Route: 064
     Dates: end: 20120806
  5. OMNIBIONTA [Suspect]
     Indication: PRODUCT USED FOR UNKNOWN INDICATION
     Dosage: 1 IN 1 D
     Route: 064

REACTIONS (9)
  - Growth retardation [None]
  - Pneumothorax [None]
  - Upper respiratory tract infection [None]
  - Maternal drugs affecting foetus [None]
  - Forceps delivery [None]
  - Hyperbilirubinaemia [None]
  - Hyponatraemia [None]
  - Acute respiratory distress syndrome [None]
  - Neonatal respiratory distress syndrome [None]
